FAERS Safety Report 12195379 (Version 2)
Quarter: 2016Q2

REPORT INFORMATION
  Report Type: Report from Study
  Country: US (occurrence: US)
  Receive Date: 20160321
  Receipt Date: 20160418
  Transmission Date: 20160815
  Serious: Yes (Hospitalization, Other)
  Sender: FDA-Public Use
  Company Number: US-GILEAD-2016-0204166

PATIENT
  Age: 67 Year
  Sex: Male

DRUGS (4)
  1. REVATIO [Concomitant]
     Active Substance: SILDENAFIL CITRATE
  2. REMODULIN [Concomitant]
     Active Substance: TREPROSTINIL
  3. AMBRISENTAN [Suspect]
     Active Substance: AMBRISENTAN
     Indication: PRODUCT USED FOR UNKNOWN INDICATION
     Dosage: 10 MG, QD
     Route: 065
     Dates: start: 20130703
  4. COUMADIN [Concomitant]
     Active Substance: WARFARIN SODIUM

REACTIONS (1)
  - Device related sepsis [Unknown]
